FAERS Safety Report 21372591 (Version 3)
Quarter: 2022Q4

REPORT INFORMATION
  Report Type: Spontaneous
  Country: US (occurrence: US)
  Receive Date: 20220924
  Receipt Date: 20221118
  Transmission Date: 20230112
  Serious: Yes (Death, Other)
  Sender: FDA-Public Use
  Company Number: US-CHIESI-2022CHF02882

PATIENT
  Age: 18 Year
  Sex: Male

DRUGS (18)
  1. BETHKIS [Suspect]
     Active Substance: TOBRAMYCIN
     Indication: Pseudomonas infection
     Dosage: UNK
     Dates: start: 20201006, end: 2020
  2. BETHKIS [Suspect]
     Active Substance: TOBRAMYCIN
     Indication: Essential hypertension
     Dosage: UNK
     Dates: start: 20201214
  3. BETHKIS [Suspect]
     Active Substance: TOBRAMYCIN
     Indication: Burkholderia mallei infection
     Dosage: UNK
     Dates: start: 20210614, end: 2021
  4. BETHKIS [Suspect]
     Active Substance: TOBRAMYCIN
     Indication: Burkholderia pseudomallei infection
     Dosage: UNK
     Dates: start: 20210819, end: 2021
  5. BETHKIS [Suspect]
     Active Substance: TOBRAMYCIN
     Indication: Mucopolysaccharidosis II
     Dosage: 300 MILLIGRAM, BID
     Route: 055
     Dates: start: 20211222, end: 2022
  6. BETHKIS [Suspect]
     Active Substance: TOBRAMYCIN
     Indication: Off label use
  7. ENALAPRIL MALEATE [Concomitant]
     Active Substance: ENALAPRIL MALEATE
     Indication: Product used for unknown indication
     Dosage: UNK
  8. KEPPRA [Concomitant]
     Active Substance: LEVETIRACETAM
     Indication: Product used for unknown indication
     Dosage: UNK
  9. ALBUTEROL SULFATE [Concomitant]
     Active Substance: ALBUTEROL SULFATE
     Indication: Product used for unknown indication
     Dosage: UNK
  10. CLONAZEPAM [Concomitant]
     Active Substance: CLONAZEPAM
     Indication: Product used for unknown indication
     Dosage: UNK
  11. RANITIDINE HYDROCHLORIDE [Concomitant]
     Active Substance: RANITIDINE HYDROCHLORIDE
     Indication: Product used for unknown indication
     Dosage: UNK
  12. ELAPRASE [Concomitant]
     Active Substance: IDURSULFASE
     Indication: Product used for unknown indication
     Dosage: UNK
  13. FLUTICASONE PROPIONATE [Concomitant]
     Active Substance: FLUTICASONE PROPIONATE
     Indication: Product used for unknown indication
     Dosage: UNK
  14. SYMBICORT [Concomitant]
     Active Substance: BUDESONIDE\FORMOTEROL FUMARATE DIHYDRATE
     Indication: Product used for unknown indication
     Dosage: 164.5 MICROGRAM, BID
     Dates: start: 20220621
  15. ALBUTEROL\IPRATROPIUM [Concomitant]
     Active Substance: ALBUTEROL\IPRATROPIUM
     Indication: Product used for unknown indication
     Dosage: UNK, QD
     Dates: start: 20220616
  16. FLORASTOR KIDS [Concomitant]
     Indication: Product used for unknown indication
     Dosage: 250 MILLIGRAM, QD
     Route: 048
     Dates: start: 20181211
  17. NEXIUM I.V. [Concomitant]
     Active Substance: ESOMEPRAZOLE SODIUM
     Indication: Product used for unknown indication
     Dosage: 20 MILLIGRAM, QD
     Route: 048
     Dates: start: 20171024
  18. GLYCOPYRROLATE [Concomitant]
     Active Substance: GLYCOPYRROLATE
     Indication: Product used for unknown indication
     Dosage: 1 MILLIGRAM, QD
     Route: 048
     Dates: start: 20200930

REACTIONS (16)
  - Respiratory failure [Fatal]
  - Cardio-respiratory arrest [Fatal]
  - Stenotrophomonas infection [Unknown]
  - Pneumonia [Unknown]
  - Tracheal stenosis [Unknown]
  - Tracheomalacia [Unknown]
  - Condition aggravated [Unknown]
  - Sepsis [Unknown]
  - Lung infiltration [Unknown]
  - Constipation [Unknown]
  - Lethargy [Unknown]
  - Incontinence [Unknown]
  - Leukocytosis [Unknown]
  - Tachypnoea [Unknown]
  - Off label use [Recovered/Resolved]
  - Condition aggravated [Unknown]

NARRATIVE: CASE EVENT DATE: 20201006
